FAERS Safety Report 16537848 (Version 1)
Quarter: 2019Q3

REPORT INFORMATION
  Report Type: Spontaneous
  Country: DK (occurrence: DK)
  Receive Date: 20190708
  Receipt Date: 20190708
  Transmission Date: 20191004
  Serious: Yes (Hospitalization)
  Sender: FDA-Public Use
  Company Number: DK-TEVA-2019-DK-1071131

PATIENT
  Age: 72 Year
  Sex: Male

DRUGS (9)
  1. LIXIANA [Concomitant]
     Active Substance: EDOXABAN TOSYLATE
     Indication: ANTICOAGULANT THERAPY
     Dosage: 30 MILLIGRAM DAILY; STRENGTH: 30MG
     Route: 048
     Dates: start: 20161214
  2. THIAMINE. [Concomitant]
     Active Substance: THIAMINE
     Indication: VITAMIN SUPPLEMENTATION
     Dosage: 300 MILLIGRAM DAILY; STRENGTH: 300MG
     Route: 048
  3. VITAMIN B [Concomitant]
     Active Substance: VITAMIN B
     Indication: VITAMIN SUPPLEMENTATION
     Dosage: 3 DOSAGE FORMS DAILY; STRENGTH: UNKNOWN
     Route: 048
  4. FOLIMET [Concomitant]
     Active Substance: FOLIC ACID
     Indication: VITAMIN SUPPLEMENTATION
     Dosage: STRENGTH: 5MG
     Route: 048
     Dates: start: 20180214, end: 20190603
  5. EMTHEXATE [Suspect]
     Active Substance: METHOTREXATE
     Indication: PSORIASIS
     Dosage: STRENGTH: 2.5 MG
     Route: 048
     Dates: start: 20180219, end: 201905
  6. MACROGOL [Concomitant]
     Active Substance: POLYETHYLENE GLYCOLS
     Indication: CONSTIPATION
     Dosage: STRENGTH: UNKNOWN?DOSE: 4 SACHETS AS NEEDED
     Route: 048
     Dates: start: 20170530, end: 20180628
  7. ALENDRONIC ACID [Concomitant]
     Active Substance: ALENDRONIC ACID
     Indication: OSTEOPOROSIS
     Dosage: STRENGTH: 70MG
     Route: 048
  8. ENSTILAR [Concomitant]
     Active Substance: BETAMETHASONE DIPROPIONATE\CALCIPOTRIENE HYDRATE
     Indication: PSORIASIS
     Dosage: 1 DOSAGE FORMS DAILY; STRENGTH- 50 MICROGRAM/GRAM + 0.5 MILLIGRAM/GRAM
     Route: 003
     Dates: start: 20180214
  9. METOPROLOL. [Concomitant]
     Active Substance: METOPROLOL
     Indication: ARRHYTHMIA
     Dosage: 100 MILLIGRAM DAILY; STRENGTH: 50MG
     Route: 048
     Dates: start: 20170531

REACTIONS (5)
  - Malaise [Unknown]
  - Dyspnoea [Unknown]
  - B-cell lymphoma stage IV [Not Recovered/Not Resolved]
  - Lymphoproliferative disorder [Not Recovered/Not Resolved]
  - Pain [Unknown]

NARRATIVE: CASE EVENT DATE: 2019
